FAERS Safety Report 9983536 (Version 1)
Quarter: 2014Q1

REPORT INFORMATION
  Report Type: Spontaneous
  Country: US (occurrence: US)
  Receive Date: 20140307
  Receipt Date: 20140307
  Transmission Date: 20141002
  Serious: Yes (Death, Other)
  Sender: FDA-Public Use
  Company Number: US-ACTAVIS-2014-03648

PATIENT
  Age: 2 Year
  Sex: 0
  Weight: 12 kg

DRUGS (7)
  1. CARBAMAZEPINE (AELLC) [Suspect]
     Indication: EPILEPSY
     Dosage: 500 MG, DAILY
     Route: 065
  2. CARBAMAZEPINE (AELLC) [Interacting]
     Indication: FEBRILE CONVULSION
     Dosage: 400 MG, DAILY
     Route: 065
  3. CARBAMAZEPINE (AELLC) [Interacting]
     Dosage: 300 MG, DAILY
     Route: 065
  4. CARBAMAZEPINE (AELLC) [Interacting]
     Dosage: 200 MG, DAILY
     Route: 065
  5. CARBAMAZEPINE (AELLC) [Interacting]
     Dosage: 150 MG, DAILY
     Route: 065
  6. PHENYTOIN (AMALLC) [Interacting]
     Indication: EPILEPSY
     Dosage: 125 MG, DAILY
     Route: 065
  7. PHENYTOIN (AMALLC) [Interacting]
     Indication: FEBRILE CONVULSION
     Dosage: 100 MG, DAILY
     Route: 065

REACTIONS (4)
  - Toxicity to various agents [Fatal]
  - Anticonvulsant drug level increased [Fatal]
  - Drug interaction [Fatal]
  - Anticonvulsant drug level decreased [Unknown]
